FAERS Safety Report 6254233-2 (Version None)
Quarter: 2009Q2

REPORT INFORMATION
  Report Type: 
  Country: None (occurrence: None)
  Receive Date: 20090630
  Receipt Date: 20080721
  Transmission Date: 20091009
  Serious: Yes (Other)
  Sender: FDA-Public Use
  Company Number: US-SEPTODONT-200800216

PATIENT
  Age: 53 Year
  Sex: Female

DRUGS (1)
  1. ARTICAINE HYDROCHLORIDE WITH EPINEPHRINE 1:100000 [Suspect]
     Indication: LOCAL ANAESTHESIA
     Dosage: DENTAL
     Route: 004
     Dates: start: 20080219, end: 20080219

REACTIONS (5)
  - INJECTION SITE PAIN [None]
  - INJECTION SITE ULCER [None]
  - MOUTH ULCERATION [None]
  - PARAESTHESIA [None]
  - TONGUE ULCERATION [None]
